FAERS Safety Report 4331035-5 (Version None)
Quarter: 2004Q1

REPORT INFORMATION
  Report Type: 
  Country: None (occurrence: None)
  Receive Date: 20040331
  Receipt Date: 20040318
  Transmission Date: 20041129
  Serious: Yes (Other)
  Sender: FDA-Public Use
  Company Number: 2004019113

PATIENT

DRUGS (4)
  1. GEODON [Suspect]
     Indication: ILL-DEFINED DISORDER
     Dosage: 120 MG
  2. DEPAKOTE [Concomitant]
  3. TRILEPTAL ^CIBA-GEGY^ (OXCARBAZEPINE) [Concomitant]
  4. EFFEXOR [Concomitant]

REACTIONS (1)
  - CONVULSION [None]
